FAERS Safety Report 13840282 (Version 1)
Quarter: 2017Q3

REPORT INFORMATION
  Report Type: Spontaneous
  Country: US (occurrence: US)
  Receive Date: 20170807
  Receipt Date: 20170807
  Transmission Date: 20171127
  Serious: No
  Sender: FDA-Public Use
  Company Number: US-ALLERGAN-1715929US

PATIENT
  Sex: Female

DRUGS (3)
  1. TRAVATAN Z [Concomitant]
     Active Substance: TRAVOPROST
     Indication: GLAUCOMA
     Dosage: UNK
     Route: 047
  2. LEVOBUNOLOL HCL, 0.25% [Suspect]
     Active Substance: LEVOBUNOLOL HYDROCHLORIDE
     Indication: GLAUCOMA
     Dosage: 2 GTT, QD
     Route: 047
     Dates: start: 2010, end: 2015
  3. LEVOBUNOLOL HCL, 0.25% [Suspect]
     Active Substance: LEVOBUNOLOL HYDROCHLORIDE
     Indication: INTRAOCULAR PRESSURE INCREASED

REACTIONS (6)
  - Product storage error [Unknown]
  - Eyelids pruritus [Recovered/Resolved]
  - Eyelid oedema [Recovered/Resolved]
  - Eyelid exfoliation [Recovered/Resolved]
  - Drug hypersensitivity [Recovered/Resolved]
  - Erythema of eyelid [Recovered/Resolved]
